FAERS Safety Report 20581859 (Version 1)
Quarter: 2022Q1

REPORT INFORMATION
  Report Type: Spontaneous
  Country: JP (occurrence: None)
  Receive Date: 20220311
  Receipt Date: 20220311
  Transmission Date: 20220423
  Serious: Yes (Other)
  Sender: FDA-Public Use
  Company Number: 2022A104520

PATIENT
  Age: 74 Year
  Sex: Female

DRUGS (1)
  1. IMFINZI [Suspect]
     Active Substance: DURVALUMAB
     Indication: Small cell lung cancer
     Dosage: DOSE UNKNOWN
     Route: 041
     Dates: start: 20200603

REACTIONS (3)
  - Immune-mediated arthritis [Unknown]
  - Soft tissue inflammation [Unknown]
  - Eczema [Unknown]

NARRATIVE: CASE EVENT DATE: 20210101
